FAERS Safety Report 9719131 (Version 3)
Quarter: 2013Q4

REPORT INFORMATION
  Report Type: Spontaneous
  Country: US (occurrence: US)
  Receive Date: 20131127
  Receipt Date: 20131230
  Transmission Date: 20140711
  Serious: Yes (Other)
  Sender: FDA-Public Use
  Company Number: CHPA2013US017487

PATIENT
  Age: 74 Year
  Sex: Male

DRUGS (2)
  1. EXCEDRIN PM [Suspect]
     Indication: HEADACHE
     Dosage: 1 TABLET; PRN
     Route: 048
  2. EXCEDRIN PM [Suspect]
     Indication: INSOMNIA

REACTIONS (4)
  - Drug dependence [Unknown]
  - Insomnia [Unknown]
  - Incorrect dose administered [Unknown]
  - Expired drug administered [Unknown]
